FAERS Safety Report 10276039 (Version 2)
Quarter: 2014Q3

REPORT INFORMATION
  Report Type: Spontaneous
  Country: US (occurrence: US)
  Receive Date: 20140703
  Receipt Date: 20140703
  Transmission Date: 20150326
  Serious: Yes (Other)
  Sender: FDA-Public Use
  Company Number: US-INCYTE CORPORATION-2014IN001590

PATIENT
  Age: 86 Year
  Sex: Female
  Weight: 65.76 kg

DRUGS (13)
  1. VITAMIN B12 [Concomitant]
     Active Substance: CYANOCOBALAMIN
  2. AMILORIDE [Concomitant]
     Active Substance: AMILORIDE
  3. LASIX [Concomitant]
     Active Substance: FUROSEMIDE
  4. HYDREA [Concomitant]
     Active Substance: HYDROXYUREA
  5. CITRACAL                           /00751520/ [Concomitant]
  6. TIMOLOL [Concomitant]
     Active Substance: TIMOLOL
  7. ECOTRIN [Concomitant]
     Active Substance: ASPIRIN
  8. RECLAST [Concomitant]
     Active Substance: ZOLEDRONIC ACID
  9. VITAMIN D                          /00107901/ [Concomitant]
     Active Substance: ERGOCALCIFEROL
  10. PREVACID [Concomitant]
     Active Substance: LANSOPRAZOLE
  11. LEVOTHYROXINE [Concomitant]
     Active Substance: LEVOTHYROXINE
  12. SIMVASTATIN. [Concomitant]
     Active Substance: SIMVASTATIN
  13. JAKAFI [Suspect]
     Active Substance: RUXOLITINIB
     Indication: MYELOFIBROSIS
     Dosage: 5 MG, BID
     Route: 048
     Dates: start: 20140414, end: 20140528

REACTIONS (1)
  - Diarrhoea [Recovered/Resolved]

NARRATIVE: CASE EVENT DATE: 20140415
